FAERS Safety Report 9262824 (Version 2)
Quarter: 2013Q2

REPORT INFORMATION
  Report Type: Spontaneous
  Country: FR (occurrence: None)
  Receive Date: 20130426
  Receipt Date: 20130503
  Transmission Date: 20140414
  Serious: Yes (Hospitalization, Other)
  Sender: FDA-Public Use
  Company Number: DSM-2012-01260

PATIENT
  Age: 66 Year
  Sex: Male
  Weight: 82 kg

DRUGS (10)
  1. OLMETEC [Suspect]
     Indication: HYPERTENSION
     Dosage: 1 IN 1 D
     Route: 048
     Dates: start: 20121218, end: 20121214
  2. COOLMETEC [Suspect]
     Indication: HYPERTENSION
     Route: 048
     Dates: start: 20130320
  3. LOPRESSOR (METOPROLOL TARTRATE) [Concomitant]
  4. ATORVASTATIN [Concomitant]
  5. KARDEGIC (ACETYLSALICYLATE LYSINE) [Concomitant]
  6. IBUPROFEN [Concomitant]
  7. CO-DOLIPRANE [Concomitant]
  8. TRAMADOL [Concomitant]
  9. IMIGRANE [Concomitant]
  10. SEVIKAR [Suspect]
     Indication: HYPERTENSION
     Route: 048
     Dates: start: 20121215

REACTIONS (2)
  - Product odour abnormal [None]
  - Nausea [None]
